FAERS Safety Report 8052686-0 (Version None)
Quarter: 2012Q1

REPORT INFORMATION
  Report Type: 
  Country: None (occurrence: None)
  Receive Date: 20120118
  Receipt Date: 20120118
  Transmission Date: 20120608
  Serious: No
  Sender: FDA-Public Use
  Company Number: None

PATIENT
  Age: 48 Year
  Sex: Male
  Weight: 109.76 kg

DRUGS (1)
  1. CLINDAMYCIN [Suspect]
     Dosage: 300MG
     Route: 048

REACTIONS (1)
  - RASH [None]
